FAERS Safety Report 4577991-1 (Version None)
Quarter: 2005Q1

REPORT INFORMATION
  Report Type: 
  Country: None (occurrence: None)
  Receive Date: 20050203
  Receipt Date: 20050203
  Transmission Date: 20050727
  Serious: Yes (Hospitalization)
  Sender: FDA-Public Use
  Company Number: None

PATIENT
  Age: 49 Year
  Sex: Female

DRUGS (1)
  1. TELITHROMYCIN [Suspect]
     Indication: SINUSITIS
     Dosage: 800MG DAILY
     Dates: start: 20041222, end: 20050112

REACTIONS (7)
  - ARTHRALGIA [None]
  - CHILLS [None]
  - DECREASED APPETITE [None]
  - LIVER FUNCTION TEST ABNORMAL [None]
  - NAUSEA [None]
  - PRURITUS [None]
  - PYREXIA [None]
